FAERS Safety Report 7124411-9 (Version None)
Quarter: 2010Q4

REPORT INFORMATION
  Report Type: 
  Country: None (occurrence: None)
  Receive Date: 20101126
  Receipt Date: 20101121
  Transmission Date: 20110411
  Serious: Yes (Other)
  Sender: FDA-Public Use
  Company Number: FR-PFIZER INC-2010156565

PATIENT
  Age: 59 Year

DRUGS (1)
  1. CHAMPIX [Suspect]
     Dosage: UNK
     Dates: end: 20101121

REACTIONS (6)
  - HAEMATEMESIS [None]
  - HAEMATOCHEZIA [None]
  - LOSS OF CONSCIOUSNESS [None]
  - MALAISE [None]
  - NAUSEA [None]
  - VOMITING [None]
